FAERS Safety Report 7228374-7 (Version None)
Quarter: 2011Q1

REPORT INFORMATION
  Report Type: 
  Country: None (occurrence: None)
  Receive Date: 20110114
  Receipt Date: 20110112
  Transmission Date: 20110831
  Serious: Yes (Other)
  Sender: FDA-Public Use
  Company Number: US-AMGEN-USASP2011002329

PATIENT

DRUGS (4)
  1. RITUXIMAB [Concomitant]
  2. CYCLOSPORINE [Concomitant]
  3. NPLATE [Suspect]
     Indication: IDIOPATHIC THROMBOCYTOPENIC PURPURA
     Dates: start: 20100816, end: 20101004
  4. CORTICOSTEROIDS [Concomitant]

REACTIONS (3)
  - BIOPSY BONE MARROW ABNORMAL [None]
  - HAEMATOLOGICAL MALIGNANCY [None]
  - DRUG INEFFECTIVE [None]
